FAERS Safety Report 9753155 (Version 3)
Quarter: 2015Q3

REPORT INFORMATION
  Report Type: Spontaneous
  Country: US (occurrence: US)
  Receive Date: 20131213
  Receipt Date: 20150805
  Transmission Date: 20151125
  Serious: No
  Sender: FDA-Public Use
  Company Number: US-GILEAD-2010-0026750

PATIENT
  Age: 49 Year
  Sex: Male

DRUGS (4)
  1. HIV MEDS [Concomitant]
     Active Substance: UNSPECIFIED INGREDIENT
  2. LETAIRIS [Suspect]
     Active Substance: AMBRISENTAN
     Indication: PULMONARY ARTERIAL HYPERTENSION
     Route: 048
     Dates: start: 20100317
  3. LETAIRIS [Suspect]
     Active Substance: AMBRISENTAN
     Route: 048
  4. COUMADIN [Concomitant]
     Active Substance: WARFARIN SODIUM

REACTIONS (1)
  - Aspartate aminotransferase increased [Recovered/Resolved]
